FAERS Safety Report 11232933 (Version 2)
Quarter: 2015Q3

REPORT INFORMATION
  Report Type: Report from Study
  Country: US (occurrence: US)
  Receive Date: 20150701
  Receipt Date: 20150722
  Transmission Date: 20151125
  Serious: No
  Sender: FDA-Public Use
  Company Number: US-ACTELION-A-NJ2015-120135

PATIENT
  Age: 61 Year
  Sex: Female

DRUGS (7)
  1. TRACLEER [Suspect]
     Active Substance: BOSENTAN
     Indication: PULMONARY ARTERIAL HYPERTENSION
     Dosage: 62.5 MG, BID
     Route: 048
     Dates: start: 200606
  2. ATENOLOL. [Concomitant]
     Active Substance: ATENOLOL
     Dosage: 50 UNK, QD
     Dates: start: 201211
  3. DIOVAN [Concomitant]
     Active Substance: VALSARTAN
     Dosage: 80 MG, BID
     Dates: start: 201404
  4. CARBAMAZEPIN [Concomitant]
     Active Substance: CARBAMAZEPINE
     Dosage: 200 AM; 100 NOON; 200 PM
     Dates: start: 201007
  5. WELLBUTRIN [Concomitant]
     Active Substance: BUPROPION HYDROCHLORIDE
     Dosage: 450 UNK, QD
     Dates: start: 201201
  6. DIAZEPAM. [Concomitant]
     Active Substance: DIAZEPAM
     Dosage: 10 MG, TID
     Dates: start: 200707
  7. SIMVASTATIN. [Concomitant]
     Active Substance: SIMVASTATIN
     Dosage: 70 UNK, QD
     Dates: start: 201404

REACTIONS (4)
  - Heat exhaustion [Recovered/Resolved]
  - Fatigue [Recovered/Resolved]
  - Dizziness [Recovered/Resolved]
  - Dehydration [Recovered/Resolved]

NARRATIVE: CASE EVENT DATE: 20150622
